FAERS Safety Report 15480020 (Version 19)
Quarter: 2022Q1

REPORT INFORMATION
  Report Type: Report from Study
  Country: CA (occurrence: CA)
  Receive Date: 20181009
  Receipt Date: 20220201
  Transmission Date: 20220424
  Serious: Yes (Other)
  Sender: FDA-Public Use
  Company Number: CA-PFIZER INC-2018403085

PATIENT
  Weight: 2.09 kg

DRUGS (21)
  1. HYDROMORPHONE HYDROCHLORIDE [Suspect]
     Active Substance: HYDROMORPHONE HYDROCHLORIDE
     Indication: Pain
     Dosage: UNK
     Route: 064
  2. PANTOPRAZOLE [Suspect]
     Active Substance: PANTOPRAZOLE
     Dosage: UNK
     Route: 064
  3. THIAMINE HYDROCHLORIDE [Suspect]
     Active Substance: THIAMINE HYDROCHLORIDE
     Indication: Hyperemesis gravidarum
     Dosage: 100 MG(ADMINISTRATION OF D5% NACL 0.9% SOLUTION WITH 100 MG OF THIAMINE)
     Route: 064
  4. THIAMINE HYDROCHLORIDE [Suspect]
     Active Substance: THIAMINE HYDROCHLORIDE
     Indication: Vomiting
  5. ONDANSETRON [Suspect]
     Active Substance: ONDANSETRON
     Indication: Hyperemesis gravidarum
     Dosage: UNK
     Route: 064
  6. ASPIRIN [Suspect]
     Active Substance: ASPIRIN
     Indication: Hyperemesis gravidarum
     Dosage: UNK
     Route: 064
  7. COSYNTROPIN [Suspect]
     Active Substance: COSYNTROPIN
     Dosage: UNK
     Route: 064
  8. DIPHENHYDRAMINE [Suspect]
     Active Substance: DIPHENHYDRAMINE
     Indication: Hyperemesis gravidarum
     Dosage: 50 MG EVERY 6 HOUR
     Route: 064
  9. DIPHENHYDRAMINE [Suspect]
     Active Substance: DIPHENHYDRAMINE
     Dosage: UNK
     Route: 064
  10. HYDROXYZINE [Suspect]
     Active Substance: HYDROXYZINE HYDROCHLORIDE
     Indication: Hyperemesis gravidarum
     Dosage: 100 MILLIGRAM
     Route: 064
  11. HYDROXYZINE [Suspect]
     Active Substance: HYDROXYZINE HYDROCHLORIDE
     Dosage: UNK
     Route: 064
  12. INSULIN HUMAN [Suspect]
     Active Substance: INSULIN HUMAN
     Dosage: UNK
     Route: 064
  13. METOCLOPRAMIDE [Suspect]
     Active Substance: METOCLOPRAMIDE
     Indication: Hyperemesis gravidarum
     Dosage: 15 MG, IN D5% 250 ML AT A RATE FROM  1. 8 MG/H TO 3.2 MG/H
     Route: 064
  14. METOCLOPRAMIDE [Suspect]
     Active Substance: METOCLOPRAMIDE
     Dosage: 10 MG EVERY 6 HOURS
     Route: 064
  15. NOVORAPID [Suspect]
     Active Substance: INSULIN ASPART
     Dosage: UNK
     Route: 064
  16. OXAZEPAM [Suspect]
     Active Substance: OXAZEPAM
     Dosage: UNK
     Route: 064
  17. SUMATRIPTAN [Suspect]
     Active Substance: SUMATRIPTAN
     Dosage: UNK
     Route: 064
  18. COSYNTROPIN HEXAACETATE [Suspect]
     Active Substance: COSYNTROPIN HEXAACETATE
     Dosage: UNK
     Route: 064
  19. DOXYCYCLINE HYCLATE [Suspect]
     Active Substance: DOXYCYCLINE HYCLATE
     Dosage: UNK
     Route: 064
  20. INSULIN ASPART [Suspect]
     Active Substance: INSULIN ASPART
     Dosage: UNK
     Route: 064
  21. VITAMINS NOS [Concomitant]
     Active Substance: VITAMINS
     Indication: Hyperemesis gravidarum
     Dosage: UNK
     Route: 064

REACTIONS (3)
  - Maternal exposure during pregnancy [Recovered/Resolved]
  - Foetal growth restriction [Recovered/Resolved]
  - Hypoglycaemia neonatal [Recovered/Resolved]
